FAERS Safety Report 14991067 (Version 3)
Quarter: 2018Q3

REPORT INFORMATION
  Report Type: Report from Study
  Country: None (occurrence: HU)
  Receive Date: 20180608
  Receipt Date: 20180702
  Transmission Date: 20181010
  Serious: Yes (Hospitalization)
  Sender: FDA-Public Use
  Company Number: HU-ABBVIE-18P-076-2375001-00

PATIENT
  Age: 75 Year
  Sex: Female
  Weight: 74.5 kg

DRUGS (17)
  1. VENETOCLAX. [Suspect]
     Active Substance: VENETOCLAX
     Dosage: 28 DAY CYCLE
     Route: 048
     Dates: start: 20180612
  2. MOXIBIOT/MOXIFLOXACIN [Concomitant]
     Indication: PROPHYLAXIS
     Route: 048
     Dates: start: 20180607, end: 20180612
  3. VENETOCLAX. [Suspect]
     Active Substance: VENETOCLAX
     Indication: ACUTE MYELOID LEUKAEMIA
     Dosage: 28 DAY CYCLE
     Route: 048
     Dates: start: 20180516, end: 20180516
  4. ACCOFIL [Concomitant]
     Active Substance: FILGRASTIM
     Indication: NEUTROPENIA
     Dosage: 48 MIU
     Route: 058
     Dates: start: 20180523, end: 20180610
  5. VENETOCLAX. [Suspect]
     Active Substance: VENETOCLAX
     Dosage: 28 DAY CYCLE
     Route: 048
     Dates: start: 20180517, end: 20180517
  6. VENETOCLAX. [Suspect]
     Active Substance: VENETOCLAX
     Dosage: 28 DAY CYCLE
     Route: 048
     Dates: start: 20180518, end: 20180601
  7. VENETOCLAX. [Suspect]
     Active Substance: VENETOCLAX
     Dosage: 28 DAY CYCLE
     Route: 048
     Dates: start: 20180608, end: 20180611
  8. FOSTER [Concomitant]
     Active Substance: BECLOMETHASONE\FORMOTEROL
     Indication: PULMONARY FIBROSIS
     Route: 055
     Dates: start: 201506
  9. VENETOCLAX. [Suspect]
     Active Substance: VENETOCLAX
     Dosage: 28 DAY CYCLE
     Route: 048
     Dates: start: 20180602, end: 20180607
  10. MILURIT [Concomitant]
     Active Substance: ALLOPURINOL
     Indication: PROPHYLAXIS
     Route: 048
     Dates: start: 20180425
  11. AZACITIDINE. [Suspect]
     Active Substance: AZACITIDINE
     Indication: ACUTE MYELOID LEUKAEMIA
     Dosage: FOR 7 DAYS OF EACH 28 DAY CYCLE
     Route: 058
     Dates: start: 20180516
  12. NORMAL SALINE SOLUTION (0.9% SODIUM CHLORIDE) [Concomitant]
     Indication: PROPHYLAXIS
     Route: 042
     Dates: start: 20180515, end: 20180519
  13. URSOFALK [Concomitant]
     Active Substance: URSODIOL
     Indication: BILE DUCT STONE
     Route: 048
     Dates: start: 201706
  14. MERONEM/MEROPENEM [Concomitant]
     Indication: FEBRILE NEUTROPENIA
     Route: 042
     Dates: start: 20180601
  15. MERONEM [Concomitant]
     Active Substance: MEROPENEM
     Indication: FEBRILE NEUTROPENIA
     Route: 042
     Dates: start: 20180601
  16. ALLOPURINOL. [Concomitant]
     Active Substance: ALLOPURINOL
     Indication: PROPHYLAXIS
     Route: 048
     Dates: start: 20180515, end: 20180519
  17. ALKALIGEN [Concomitant]
     Indication: PROPHYLAXIS
     Route: 042
     Dates: start: 20180515, end: 20180519

REACTIONS (1)
  - Pharyngitis [Recovered/Resolved]

NARRATIVE: CASE EVENT DATE: 20180601
